FAERS Safety Report 23524221 (Version 1)
Quarter: 2024Q1

REPORT INFORMATION
  Report Type: Spontaneous
  Country: TR (occurrence: TR)
  Receive Date: 20240214
  Receipt Date: 20240214
  Transmission Date: 20240410
  Serious: Yes (Hospitalization)
  Sender: FDA-Public Use
  Company Number: TR-BAUSCHBL-2024BNL001593

PATIENT
  Age: 47 Year
  Sex: Male

DRUGS (1)
  1. PROPARACAINE [Suspect]
     Active Substance: PROPARACAINE
     Indication: Foreign body in eye
     Dosage: 20-25 DROPS PER DAY
     Route: 061

REACTIONS (3)
  - Keratitis [Unknown]
  - Self-medication [Unknown]
  - Intentional product misuse [Unknown]
